FAERS Safety Report 4545212-1 (Version None)
Quarter: 2004Q4

REPORT INFORMATION
  Report Type: 
  Country: None (occurrence: None)
  Receive Date: 20041222
  Receipt Date: 20040809
  Transmission Date: 20050328
  Serious: Yes (Hospitalization)
  Sender: FDA-Public Use
  Company Number: USA040875003

PATIENT
  Age: 48 Year
  Sex: Female
  Weight: 95 kg

DRUGS (1)
  1. HUMALOG [Suspect]
     Dosage: 54 U DAY
     Dates: start: 20030101

REACTIONS (1)
  - ARTERIAL OCCLUSIVE DISEASE [None]
